FAERS Safety Report 5626157-2 (Version None)
Quarter: 2008Q1

REPORT INFORMATION
  Report Type: 
  Country: None (occurrence: None)
  Receive Date: 20080211
  Receipt Date: 20080123
  Transmission Date: 20080703
  Serious: Yes (Other)
  Sender: FDA-Public Use
  Company Number: 2008JP000516

PATIENT
  Age: 48 Year
  Sex: Male

DRUGS (2)
  1. PROGRAF [Suspect]
     Indication: LIVER TRANSPLANT
  2. CYCLOPHOSPHAMIDE (CYCLOPHOSPHAMIDE) FORMULATION UNKNOWN [Concomitant]

REACTIONS (1)
  - THROMBOTIC MICROANGIOPATHY [None]
